FAERS Safety Report 7769985-X (Version None)
Quarter: 2011Q3

REPORT INFORMATION
  Report Type: 
  Country: None (occurrence: None)
  Receive Date: 20110922
  Receipt Date: 20100902
  Transmission Date: 20111222
  Serious: No
  Sender: FDA-Public Use
  Company Number: US-ASTRAZENECA-2007UW18747

PATIENT
  Age: 49 Year
  Sex: Female
  Weight: 72.6 kg

DRUGS (21)
  1. SEROQUEL [Suspect]
     Indication: DEPRESSION
     Route: 048
     Dates: start: 20050101, end: 20060901
  2. ZYPREXA [Concomitant]
     Route: 048
  3. DIPHENHYDRAMINE HCL [Concomitant]
  4. ASPIRIN [Concomitant]
  5. SEROQUEL [Suspect]
     Indication: BIPOLAR DISORDER
     Route: 048
     Dates: start: 20050101, end: 20060901
  6. FELODIPINE [Concomitant]
  7. SEROQUEL [Suspect]
     Route: 048
     Dates: start: 19970101
  8. DIOVAN [Concomitant]
  9. MORPHINE [Concomitant]
  10. METOPROLOL TARTRATE [Concomitant]
  11. AMBIEN [Concomitant]
  12. ZOLOFT [Concomitant]
  13. ATROVENT [Concomitant]
  14. LANOXIN [Concomitant]
  15. SEROQUEL [Suspect]
     Route: 048
     Dates: start: 19970101
  16. LIPITOR [Concomitant]
  17. ABILIFY [Concomitant]
  18. NITROGLYCERIN [Concomitant]
  19. COREG [Concomitant]
  20. LORAZEPAM [Concomitant]
  21. FUROSEMIDE [Concomitant]

REACTIONS (3)
  - CHRONIC OBSTRUCTIVE PULMONARY DISEASE [None]
  - TYPE 2 DIABETES MELLITUS [None]
  - CARDIAC FAILURE CONGESTIVE [None]
